FAERS Safety Report 5289504-X (Version None)
Quarter: 2007Q2

REPORT INFORMATION
  Report Type: 
  Country: None (occurrence: None)
  Receive Date: 20070402
  Receipt Date: 20070323
  Transmission Date: 20071010
  Serious: Yes (Hospitalization)
  Sender: FDA-Public Use
  Company Number: 163-20785-07030641

PATIENT
  Age: 81 Year
  Sex: Male

DRUGS (2)
  1. THALOMID [Suspect]
     Indication: MULTIPLE MYELOMA
     Dosage: 100 MG, 2 IN 1 D, ORAL, 50  MG, 1IN 1 D, ORAL
     Route: 048
     Dates: start: 20060901
  2. THALOMID [Suspect]
     Indication: MULTIPLE MYELOMA
     Dosage: 100 MG, 2 IN 1 D, ORAL, 50  MG, 1IN 1 D, ORAL
     Route: 048
     Dates: start: 20070301

REACTIONS (3)
  - CARDIAC DISORDER [None]
  - DEHYDRATION [None]
  - NEUTROPENIA [None]
